FAERS Safety Report 6464721-1 (Version None)
Quarter: 2009Q4

REPORT INFORMATION
  Report Type: 
  Country: None (occurrence: None)
  Receive Date: 20091201
  Receipt Date: 20091119
  Transmission Date: 20100525
  Serious: Yes (Other)
  Sender: FDA-Public Use
  Company Number: KR-ELI_LILLY_AND_COMPANY-KR200911004882

PATIENT
  Age: 70 Year
  Sex: Female

DRUGS (2)
  1. FORTEO [Suspect]
     Indication: OSTEOPOROSIS
     Dosage: 20 UG, DAILY (1/D)
     Route: 065
     Dates: start: 20081020
  2. ANTINEOPLASTIC AGENTS [Concomitant]
     Indication: BREAST CANCER
     Dosage: UNK, UNKNOWN
     Route: 048

REACTIONS (2)
  - DRUG INEFFECTIVE [None]
  - THYROID CYST [None]
